FAERS Safety Report 19704971 (Version 1)
Quarter: 2021Q3

REPORT INFORMATION
  Report Type: Spontaneous
  Country: US (occurrence: US)
  Receive Date: 20210816
  Receipt Date: 20210816
  Transmission Date: 20211014
  Serious: Yes (Other)
  Sender: FDA-Public Use
  Company Number: None

PATIENT
  Age: 66 Year
  Sex: Female
  Weight: 62.2 kg

DRUGS (1)
  1. ZIRABEV [Suspect]
     Active Substance: BEVACIZUMAB-BVZR
     Indication: COLON CANCER METASTATIC
     Dosage: ?          OTHER FREQUENCY:EVERY 14 DAYS;?
     Route: 041
     Dates: start: 20210728, end: 20210728

REACTIONS (4)
  - Dyspnoea [None]
  - Infusion related reaction [None]
  - Blood pressure systolic increased [None]
  - Pallor [None]

NARRATIVE: CASE EVENT DATE: 20210728
